FAERS Safety Report 5052589-X (Version None)
Quarter: 2006Q3

REPORT INFORMATION
  Report Type: 
  Country: None (occurrence: None)
  Receive Date: 20060717
  Receipt Date: 20060614
  Transmission Date: 20061208
  Serious: Yes (Hospitalization)
  Sender: FDA-Public Use
  Company Number: JP-JPN-A200602069

PATIENT
  Age: 6 Year
  Sex: Male
  Weight: 25 kg

DRUGS (11)
  1. CLAVAMOX [Suspect]
     Indication: OTITIS MEDIA
     Dosage: 1.9G TWICE PER DAY
     Route: 048
     Dates: start: 20060612, end: 20060612
  2. SAWACILLIN [Suspect]
     Indication: STREPTOCOCCAL INFECTION
     Dosage: 250MG THREE TIMES PER DAY
     Route: 048
     Dates: start: 20060525, end: 20060603
  3. ZADITEN [Concomitant]
     Indication: ASTHMA
     Dosage: 1.5G PER DAY
     Route: 048
     Dates: start: 20060606, end: 20060612
  4. FLOMOX [Concomitant]
     Indication: STREPTOCOCCAL INFECTION
     Dosage: 249MG PER DAY
     Route: 048
     Dates: start: 20060606, end: 20060612
  5. BIOFERMIN R [Concomitant]
     Indication: STREPTOCOCCAL INFECTION
     Dosage: 3G PER DAY
     Route: 048
     Dates: start: 20060606, end: 20060612
  6. ONON [Concomitant]
     Indication: ASTHMA
     Dosage: 100MG PER DAY
     Route: 048
     Dates: start: 20030415
  7. THEO-DUR [Concomitant]
     Indication: ASTHMA
     Dosage: 120MG PER DAY
     Route: 048
     Dates: start: 20030401
  8. BISOLVON [Concomitant]
     Indication: ASTHMA
     Dosage: 8MG PER DAY
     Route: 048
     Dates: start: 20030401
  9. PERIACTIN [Concomitant]
     Indication: ASTHMA
     Dosage: 6MG PER DAY
     Route: 048
     Dates: start: 20030401
  10. FLUTIDE DISKUS [Concomitant]
     Indication: ASTHMA
     Dosage: 200MCG PER DAY
     Route: 055
     Dates: start: 20030501
  11. KETOTIFEN [Concomitant]

REACTIONS (4)
  - ERYTHEMA [None]
  - PRURITUS [None]
  - PYREXIA [None]
  - RASH [None]
